FAERS Safety Report 5319937-4 (Version None)
Quarter: 2007Q2

REPORT INFORMATION
  Report Type: 
  Country: None (occurrence: None)
  Receive Date: 20070502
  Receipt Date: 20070416
  Transmission Date: 20071010
  Serious: Yes (Life-Threatening)
  Sender: FDA-Public Use
  Company Number: S07-GER-01816-01

PATIENT
  Sex: Female

DRUGS (1)
  1. MEMANTINE HCL [Suspect]
     Indication: DEMENTIA
     Dosage: 10 MG QD PO
     Route: 048
     Dates: start: 20040101

REACTIONS (6)
  - ACUTE ABDOMEN [None]
  - CARDIAC FAILURE [None]
  - FAECALOMA [None]
  - SINUS TACHYCARDIA [None]
  - TETANY [None]
  - TRANSAMINASES INCREASED [None]
